FAERS Safety Report 24722037 (Version 1)
Quarter: 2024Q4

REPORT INFORMATION
  Report Type: Spontaneous
  Country: US (occurrence: None)
  Receive Date: 20241210
  Receipt Date: 20241210
  Transmission Date: 20250115
  Serious: Yes (Hospitalization)
  Sender: Public
  Company Number: None

PATIENT
  Age: 54 Year
  Sex: Male

DRUGS (1)
  1. CASIRIVIMAB [Suspect]
     Active Substance: CASIRIVIMAB
     Dosage: INTRAVENOUS
     Route: 042
     Dates: start: 20210824, end: 20210824

REACTIONS (7)
  - Asthenia [None]
  - Decreased appetite [None]
  - Fall [None]
  - COVID-19 pneumonia [None]
  - Pulmonary embolism [None]
  - Acute kidney injury [None]
  - Acute myocardial infarction [None]

NARRATIVE: CASE EVENT DATE: 20210824
